FAERS Safety Report 14934278 (Version 1)
Quarter: 2018Q2

REPORT INFORMATION
  Report Type: Spontaneous
  Country: JP (occurrence: JP)
  Receive Date: 20180524
  Receipt Date: 20180524
  Transmission Date: 20180711
  Serious: Yes (Other)
  Sender: FDA-Public Use
  Company Number: JP-BAYER-2018-094592

PATIENT
  Age: 67 Year
  Sex: Female

DRUGS (2)
  1. STIVARGA [Suspect]
     Active Substance: REGORAFENIB
     Indication: NEOPLASM PROGRESSION
  2. STIVARGA [Suspect]
     Active Substance: REGORAFENIB
     Indication: NEOPLASM

REACTIONS (5)
  - Tumour necrosis [None]
  - Neoplasm progression [None]
  - Pyrexia [None]
  - Abdominal pain [None]
  - Platelet count decreased [None]
